FAERS Safety Report 5086858-4 (Version None)
Quarter: 2006Q3

REPORT INFORMATION
  Report Type: 
  Country: None (occurrence: None)
  Receive Date: 20060818
  Receipt Date: 20060421
  Transmission Date: 20061208
  Serious: No
  Sender: FDA-Public Use
  Company Number: TPA2006A00700

PATIENT
  Sex: Female

DRUGS (2)
  1. PIOGLITAZONE HYDROCHLORIDE [Suspect]
     Indication: HEPATIC STEATOSIS
     Dosage: 1 IN 1 D, PER ORAL
     Route: 048
     Dates: start: 20050315
  2. YASMIN [Concomitant]

REACTIONS (4)
  - ALANINE AMINOTRANSFERASE INCREASED [None]
  - ASPARTATE AMINOTRANSFERASE INCREASED [None]
  - INCORRECT DOSE ADMINISTERED [None]
  - PHARYNGOLARYNGEAL PAIN [None]
